FAERS Safety Report 16605764 (Version 1)
Quarter: 2019Q3

REPORT INFORMATION
  Report Type: Spontaneous
  Country: US (occurrence: US)
  Receive Date: 20190721
  Receipt Date: 20190721
  Transmission Date: 20191004
  Serious: No
  Sender: FDA-Public Use
  Company Number: US-GALDERMA-US18052197

PATIENT
  Sex: Male

DRUGS (8)
  1. PROACTIV MD ADAPALENE ACNE TREATMENT [Suspect]
     Active Substance: ADAPALENE
     Indication: PRODUCT USED FOR UNKNOWN INDICATION
     Dosage: 0.1%
     Route: 061
     Dates: start: 201805, end: 2018
  2. PROACTIV MD DAILY OIL CONTROL SPF 30 [Suspect]
     Active Substance: AVOBENZONE\OCTISALATE\OCTOCRYLENE
     Indication: PRODUCT USED FOR UNKNOWN INDICATION
     Route: 061
     Dates: start: 201805, end: 2018
  3. PROACTIV ADVANCED DAILY OIL CONTROL [Concomitant]
     Active Substance: SALICYLIC ACID
     Route: 061
     Dates: start: 201805, end: 2018
  4. PROACTIV RENEWING CLEANSER [Concomitant]
     Active Substance: BENZOYL PEROXIDE
     Route: 061
     Dates: start: 201805, end: 2018
  5. PROACTIV MD DEEP CLEANSING FACE WASH [Concomitant]
     Active Substance: COSMETICS
     Route: 061
     Dates: start: 201805, end: 2018
  6. PROACTIV GREEN TEA MOISTURIZER [Concomitant]
     Active Substance: COSMETICS
     Route: 061
     Dates: start: 201805, end: 2018
  7. PROACTIV REVITALIZING TONER [Concomitant]
     Active Substance: COSMETICS
     Route: 061
     Dates: start: 201805, end: 2018
  8. PROACTIV REPAIRING TREATMENT [Concomitant]
     Active Substance: BENZOYL PEROXIDE
     Route: 061
     Dates: start: 201805, end: 2018

REACTIONS (3)
  - Skin irritation [Recovering/Resolving]
  - Dry skin [Recovering/Resolving]
  - Seborrhoea [Recovering/Resolving]

NARRATIVE: CASE EVENT DATE: 201805
